FAERS Safety Report 15853560 (Version 2)
Quarter: 2019Q1

REPORT INFORMATION
  Report Type: Spontaneous
  Country: FR (occurrence: FR)
  Receive Date: 20190122
  Receipt Date: 20190124
  Transmission Date: 20190417
  Serious: Yes (Death, Hospitalization, Other)
  Sender: FDA-Public Use
  Company Number: FR-PFIZER INC-2019027891

PATIENT
  Age: 85 Year
  Sex: Male
  Weight: 75 kg

DRUGS (6)
  1. ELIQUIS [Suspect]
     Active Substance: APIXABAN
     Indication: ATRIAL FIBRILLATION
  2. AMIODARONE HCL [Suspect]
     Active Substance: AMIODARONE HYDROCHLORIDE
     Indication: CARDIAC FAILURE
     Dosage: 400 MG, DRUG INTERVAL DOSING UNIT 1 DAY
     Route: 048
     Dates: end: 20181202
  3. ELIQUIS [Suspect]
     Active Substance: APIXABAN
     Indication: CEREBROVASCULAR ACCIDENT PROPHYLAXIS
     Dosage: 5 MG, DRUG INTERVAL DOSING UNIT 1 DAY
     Route: 048
     Dates: end: 20181202
  4. FUROSEMIDE. [Suspect]
     Active Substance: FUROSEMIDE
     Indication: CARDIAC FAILURE
     Dosage: 80 MG, DRUG INTERVAL DOSING UNIT 1 DAY
     Route: 048
     Dates: end: 20181202
  5. RAMIPRIL. [Suspect]
     Active Substance: RAMIPRIL
     Indication: CARDIAC FAILURE
     Dosage: 2.5 MG, DRUG INTERVAL DOSING UNIT 1 DAY
     Route: 048
     Dates: end: 20181202
  6. LEVOTHYROX [Suspect]
     Active Substance: LEVOTHYROXINE
     Indication: HYPOTHYROIDISM
     Dosage: 25 G, DRUG INTERVAL DOSING UNIT 1 DAY
     Route: 048

REACTIONS (2)
  - Lung disorder [Fatal]
  - Respiratory failure [Fatal]

NARRATIVE: CASE EVENT DATE: 20181122
